FAERS Safety Report 17522202 (Version 1)
Quarter: 2020Q1

REPORT INFORMATION
  Report Type: Spontaneous
  Country: US (occurrence: US)
  Receive Date: 20200310
  Receipt Date: 20200310
  Transmission Date: 20200409
  Serious: No
  Sender: FDA-Public Use
  Company Number: US-VERTEX PHARMACEUTICALS-2020-004453

PATIENT
  Age: 25 Year
  Sex: Male

DRUGS (30)
  1. ONDANSETRON [Concomitant]
     Active Substance: ONDANSETRON
  2. ENSURE ACTIVE HIGH PROTEIN [Concomitant]
  3. TRIKAFTA [Suspect]
     Active Substance: ELEXACAFTOR\IVACAFTOR\TEZACAFTOR
     Dosage: 2 TABS (100MG ELEXACAFTOR/50MG TEZACAFTOR/75MG IVACAFTOR) IN AM
     Route: 048
  4. FEXOFENADINE [Concomitant]
     Active Substance: FEXOFENADINE HYDROCHLORIDE
  5. LINEZOLID. [Concomitant]
     Active Substance: LINEZOLID
  6. TIZANIDINE. [Concomitant]
     Active Substance: TIZANIDINE
  7. CREON [Concomitant]
     Active Substance: PANCRELIPASE AMYLASE\PANCRELIPASE LIPASE\PANCRELIPASE PROTEASE
  8. PULMOZYME [Concomitant]
     Active Substance: DORNASE ALFA
  9. RANITIDINE. [Concomitant]
     Active Substance: RANITIDINE
  10. SPIRONOLACTONE. [Concomitant]
     Active Substance: SPIRONOLACTONE
  11. ELIQUIS [Concomitant]
     Active Substance: APIXABAN
  12. AZITHROMYCIN ANHYDROUS. [Concomitant]
     Active Substance: AZITHROMYCIN ANHYDROUS
  13. BUPROPION. [Concomitant]
     Active Substance: BUPROPION
  14. QUETIAPINE. [Concomitant]
     Active Substance: QUETIAPINE
  15. TRIAMCINOLONE [TRIAMCINOLONE ACETONIDE] [Concomitant]
  16. TRIKAFTA [Suspect]
     Active Substance: ELEXACAFTOR\IVACAFTOR\TEZACAFTOR
     Indication: CYSTIC FIBROSIS
     Dosage: 2 TABS (100MG ELEXACAFTOR/50MG TEZACAFTOR/75MG IVACAFTOR) IN AM AND 1 TAB (150MG IVACAFTOR) IN PM
     Route: 048
     Dates: start: 20191216
  17. ALBUTEROL [SALBUTAMOL SULFATE] [Concomitant]
     Active Substance: ALBUTEROL SULFATE
  18. FLUTICASONE. [Concomitant]
     Active Substance: FLUTICASONE
     Route: 045
  19. LORATADINE. [Concomitant]
     Active Substance: LORATADINE
  20. PANTOPRAZOLE [Concomitant]
     Active Substance: PANTOPRAZOLE
  21. SODIUM CHLORIDE. [Concomitant]
     Active Substance: SODIUM CHLORIDE
  22. URSODIOL. [Concomitant]
     Active Substance: URSODIOL
  23. BUPRENORPHINE;NALOXONE [Concomitant]
     Active Substance: BUPRENORPHINE\NALOXONE
  24. PHYTONADIONE. [Concomitant]
     Active Substance: PHYTONADIONE
  25. PROAIR HFA [Concomitant]
     Active Substance: ALBUTEROL SULFATE
  26. CIPROFLOXACIN. [Concomitant]
     Active Substance: CIPROFLOXACIN
  27. FUROSEMIDE. [Concomitant]
     Active Substance: FUROSEMIDE
  28. GABAPENTIN. [Concomitant]
     Active Substance: GABAPENTIN
  29. HYDROCORTISONE. [Concomitant]
     Active Substance: HYDROCORTISONE
  30. PREDNISONE. [Concomitant]
     Active Substance: PREDNISONE

REACTIONS (1)
  - Hepatic enzyme increased [Not Recovered/Not Resolved]

NARRATIVE: CASE EVENT DATE: 202002
